FAERS Safety Report 25596203 (Version 1)
Quarter: 2025Q3

REPORT INFORMATION
  Report Type: Spontaneous
  Country: US (occurrence: US)
  Receive Date: 20250723
  Receipt Date: 20250723
  Transmission Date: 20251020
  Serious: No
  Sender: SANOFI AVENTIS
  Company Number: US-SA-2025SA211394

PATIENT
  Age: 14 Year
  Sex: Male

DRUGS (2)
  1. ALTUVIIIO [Suspect]
     Active Substance: EFANESOCTOCOG ALFA
     Indication: Factor VIII deficiency
     Dosage: 2360-3540 UNITS EVERY 7 DAYS FOR MAJOR BLEEDS
     Route: 042
     Dates: start: 202310
  2. ALTUVIIIO [Suspect]
     Active Substance: EFANESOCTOCOG ALFA
     Indication: Haemorrhage prophylaxis
     Route: 042

REACTIONS (1)
  - Lip haemorrhage [Unknown]

NARRATIVE: CASE EVENT DATE: 20250713
